FAERS Safety Report 8332336-6 (Version None)
Quarter: 2012Q2

REPORT INFORMATION
  Report Type: 
  Country: None (occurrence: None)
  Receive Date: 20120430
  Receipt Date: 20120416
  Transmission Date: 20120825
  Serious: Yes (Hospitalization)
  Sender: FDA-Public Use
  Company Number: TPA2012A02192

PATIENT
  Age: 95 Year
  Sex: Male

DRUGS (7)
  1. LERCANIDIPINA (LERCANIDIPINE) [Concomitant]
  2. ACETAMINOPHEN [Concomitant]
  3. EDUCTYL (SODIUM BICARBONATE, POTASSIUM BITARTRATE) [Concomitant]
  4. PRASTERONE [Concomitant]
  5. LASILIX (FUROSEMIDE) [Concomitant]
  6. ADENURIC (FEBUXOSTAT) [Suspect]
     Indication: PRODUCT USED FOR UNKNOWN INDICATION
     Dosage: ORAL
     Route: 048
     Dates: end: 20111101
  7. SOLMUCOL (ACETYLCYSTEINE) [Concomitant]

REACTIONS (19)
  - FALL [None]
  - TOXIC ENCEPHALOPATHY [None]
  - MOTOR DYSFUNCTION [None]
  - OEDEMA PERIPHERAL [None]
  - CONDITION AGGRAVATED [None]
  - GOUTY ARTHRITIS [None]
  - HEAD INJURY [None]
  - ARTHRALGIA [None]
  - OSTEOARTHRITIS [None]
  - RENAL FAILURE [None]
  - DEHYDRATION [None]
  - TREMOR [None]
  - BUNDLE BRANCH BLOCK LEFT [None]
  - SEBORRHOEIC DERMATITIS [None]
  - OSTEITIS DEFORMANS [None]
  - ESCHERICHIA URINARY TRACT INFECTION [None]
  - HALLUCINATIONS, MIXED [None]
  - MIOSIS [None]
  - HEART SOUNDS ABNORMAL [None]
